FAERS Safety Report 10716269 (Version 1)
Quarter: 2015Q1

REPORT INFORMATION
  Report Type: Spontaneous
  Country: US (occurrence: US)
  Receive Date: 20150116
  Receipt Date: 20150116
  Transmission Date: 20150721
  Serious: Yes (Other)
  Sender: FDA-Public Use
  Company Number: US-PFIZER INC-2014324805

PATIENT
  Age: 68 Year
  Sex: Female

DRUGS (13)
  1. SYNTHROID [Concomitant]
     Active Substance: LEVOTHYROXINE SODIUM
     Indication: HYPOTHYROIDISM
     Dosage: UNK
  2. INSULIN [Concomitant]
     Active Substance: INSULIN NOS
  3. SUTENT [Suspect]
     Active Substance: SUNITINIB MALATE
     Dosage: 37.5 MG DAILY, 28 DAYS ON, 14 DAYS OFF
  4. FLUTICASONE [Concomitant]
     Active Substance: FLUTICASONE\FLUTICASONE PROPIONATE
     Dosage: UNK
  5. SUTENT [Suspect]
     Active Substance: SUNITINIB MALATE
     Indication: METASTATIC RENAL CELL CARCINOMA
     Dosage: 50 MG DAILY (STRENGTH 12.5 MG), 28 DAYS ON AND 14 OFF
     Route: 048
  6. CELEBREX [Concomitant]
     Active Substance: CELECOXIB
  7. SERTRALINE [Concomitant]
     Active Substance: SERTRALINE HYDROCHLORIDE
     Indication: DIABETES MELLITUS
     Dosage: UNK
  8. METOPROLOL [Concomitant]
     Active Substance: METOPROLOL
     Dosage: UNK
  9. OXYCONTIN [Concomitant]
     Active Substance: OXYCODONE HYDROCHLORIDE
     Dosage: UNK
  10. FERROUS SULFATE [Concomitant]
     Active Substance: FERROUS SULFATE\FERROUS SULFATE, DRIED
     Dosage: UNK
  11. NEURONTIN [Concomitant]
     Active Substance: GABAPENTIN
  12. PROSTATIN [Concomitant]
     Active Substance: ARCTOSTAPHYLOS UVA-URSI LEAF\URTICA DIOICA
     Dosage: UNK
  13. PRAVASTATIN [Concomitant]
     Active Substance: PRAVASTATIN\PRAVASTATIN SODIUM
     Dosage: UNK

REACTIONS (17)
  - Hypophagia [Unknown]
  - Chromaturia [Unknown]
  - Oral pain [Recovered/Resolved]
  - Food intolerance [Unknown]
  - Fatigue [Unknown]
  - Nasal congestion [Unknown]
  - Haematemesis [Recovered/Resolved]
  - Hypersomnia [Unknown]
  - Chest pain [Recovered/Resolved]
  - Tremor [Unknown]
  - Dysgeusia [Unknown]
  - Productive cough [Unknown]
  - Glossodynia [Unknown]
  - Decreased appetite [Unknown]
  - Somnolence [Unknown]
  - Gait disturbance [Unknown]
  - Dry skin [Unknown]
